FAERS Safety Report 6395324-5 (Version None)
Quarter: 2009Q4

REPORT INFORMATION
  Report Type: 
  Country: None (occurrence: None)
  Receive Date: 20091009
  Receipt Date: 20091005
  Transmission Date: 20100525
  Serious: Yes (Death)
  Sender: FDA-Public Use
  Company Number: B0587475A

PATIENT
  Sex: Female

DRUGS (4)
  1. VALTREX [Suspect]
     Indication: HERPES ZOSTER
     Dosage: 1000MG THREE TIMES PER DAY
     Route: 048
     Dates: start: 20090723
  2. NOVAMIN [Suspect]
     Indication: DRUG USE FOR UNKNOWN INDICATION
     Dosage: 5MG THREE TIMES PER DAY
     Route: 065
     Dates: start: 20090728
  3. OXYCONTIN [Suspect]
     Indication: DRUG USE FOR UNKNOWN INDICATION
     Dosage: 5MG TWICE PER DAY
     Route: 048
     Dates: start: 20090728
  4. WARFARIN SODIUM [Concomitant]
     Indication: THROMBOSIS PROPHYLAXIS
     Dosage: 4MG PER DAY
     Route: 048
     Dates: start: 20090717

REACTIONS (3)
  - CHRONIC LYMPHOCYTIC LEUKAEMIA [None]
  - LUNG NEOPLASM MALIGNANT [None]
  - PROTHROMBIN TIME RATIO INCREASED [None]
